FAERS Safety Report 9989754 (Version 1)
Quarter: 2013Q4

REPORT INFORMATION
  Report Type: Spontaneous
  Country: US (occurrence: None)
  Receive Date: 20131107
  Receipt Date: 20131107
  Transmission Date: 20140711
  Serious: Yes (Other)
  Sender: FDA-Public Use
  Company Number: ADR-2013-01415

PATIENT
  Age: 52 Year
  Sex: Male

DRUGS (8)
  1. BACLOFEN [Suspect]
     Indication: PAIN
  2. BACLOFEN [Suspect]
  3. FENTANYL [Suspect]
  4. BUPIVACAINE [Suspect]
  5. FENTANYL [Suspect]
     Route: 048
  6. TYLENOL [Suspect]
  7. MOTRIN [Suspect]
  8. UNSPECIFIED ORAL MEDICATION [Suspect]
     Indication: PAIN

REACTIONS (11)
  - No therapeutic response [None]
  - Pain [None]
  - Drug intolerance [None]
  - Drug withdrawal syndrome [None]
  - Back pain [None]
  - Lethargy [None]
  - Insomnia [None]
  - Memory impairment [None]
  - Breakthrough pain [None]
  - Blood pressure increased [None]
  - Device alarm issue [None]
